FAERS Safety Report 4565672-X (Version None)
Quarter: 2005Q1

REPORT INFORMATION
  Report Type: 
  Country: None (occurrence: None)
  Receive Date: 20050131
  Receipt Date: 20050119
  Transmission Date: 20050727
  Serious: Yes (Other)
  Sender: FDA-Public Use
  Company Number: HR-NOVOPROD-241773

PATIENT
  Age: 0 Day
  Sex: Male
  Weight: 1 kg

DRUGS (4)
  1. NOVORAPID PENFILL 3.0 ML [Suspect]
     Indication: DIABETES MELLITUS INSULIN-DEPENDENT
     Dosage: 34 IU, QD
     Route: 015
     Dates: start: 20040726
  2. INSULATARD PENFILL [Concomitant]
     Indication: DIABETES MELLITUS INSULIN-DEPENDENT
     Dosage: 38 IU, QD
     Route: 015
     Dates: start: 20040726
  3. CUROSURF [Concomitant]
     Indication: NEONATAL RESPIRATORY DISTRESS SYNDROME
     Dosage: 120 MG, QD
     Route: 039
     Dates: start: 20050106, end: 20050106
  4. FOLIC ACID [Concomitant]
     Dosage: 400 UG, QD
     Route: 015
     Dates: start: 20040726

REACTIONS (1)
  - HYPOGLYCAEMIA NEONATAL [None]
